FAERS Safety Report 24005666 (Version 2)
Quarter: 2024Q2

REPORT INFORMATION
  Report Type: Report from Study
  Country: US (occurrence: US)
  Receive Date: 20240624
  Receipt Date: 20240626
  Transmission Date: 20240715
  Serious: Yes (Hospitalization, Other)
  Sender: FDA-Public Use
  Company Number: US-BIOVITRUM-2023-US-020582

PATIENT
  Age: 70 Year
  Sex: Female

DRUGS (6)
  1. DOPTELET [Suspect]
     Active Substance: AVATROMBOPAG MALEATE
     Indication: Immune thrombocytopenia
     Dosage: 20 MG, DAILY?TUESDAY, THURSDAY, SATURDAY, SUNDAY
     Route: 048
     Dates: start: 20231127
  2. DOPTELET [Suspect]
     Active Substance: AVATROMBOPAG MALEATE
     Dosage: 20 MG THREE TIMES WEEKLY
     Route: 048
     Dates: start: 20231127
  3. DOPTELET [Suspect]
     Active Substance: AVATROMBOPAG MALEATE
     Dosage: 40 MG DAILY?MONDAY, WEDNESDAY, FRIDAYS
     Route: 048
     Dates: start: 20231127
  4. DOPTELET [Suspect]
     Active Substance: AVATROMBOPAG MALEATE
     Dosage: MONDAY, WEDNESDAY, AND FRIDAY AND 1 TABLET ON ALL OTHER DAYS
     Route: 048
     Dates: start: 20231127
  5. DOPTELET [Suspect]
     Active Substance: AVATROMBOPAG MALEATE
     Dosage: 40 MG DAILY
     Route: 048
     Dates: start: 20231127
  6. PREDNISONE [Suspect]
     Active Substance: PREDNISONE
     Indication: Product used for unknown indication

REACTIONS (12)
  - Steroid withdrawal syndrome [Unknown]
  - Platelet count increased [Unknown]
  - Petechiae [Not Recovered/Not Resolved]
  - Intentional dose omission [Unknown]
  - Arthralgia [Unknown]
  - Platelet count decreased [Unknown]
  - Musculoskeletal stiffness [Unknown]
  - Pain in extremity [Unknown]
  - Epistaxis [Unknown]
  - Pneumonia [Unknown]
  - Contusion [Not Recovered/Not Resolved]
  - Drug ineffective [Unknown]

NARRATIVE: CASE EVENT DATE: 20231222
